FAERS Safety Report 21228599 (Version 1)
Quarter: 2022Q3

REPORT INFORMATION
  Report Type: Spontaneous
  Country: US (occurrence: US)
  Receive Date: 20220818
  Receipt Date: 20220818
  Transmission Date: 20221027
  Serious: Yes (Other)
  Sender: FDA-Public Use
  Company Number: US-ORGANON-O2208USA001409

PATIENT
  Age: 44 Year
  Sex: Female

DRUGS (4)
  1. SINGULAIR [Suspect]
     Active Substance: MONTELUKAST SODIUM
     Indication: Product used for unknown indication
     Dosage: UNK
     Route: 048
  2. OFEV [Suspect]
     Active Substance: NINTEDANIB
     Indication: Interstitial lung disease
     Dosage: 150 MILLIGRAM, 1 EVERY 12 HOUR
     Route: 048
     Dates: start: 20220303, end: 2022
  3. OFEV [Suspect]
     Active Substance: NINTEDANIB
     Dosage: 100 MILLIGRAM, 1 EVERY 12 HOUR, DOSE REDUCED
     Route: 048
     Dates: start: 2022
  4. LEXAPRO [Suspect]
     Active Substance: ESCITALOPRAM OXALATE
     Indication: Product used for unknown indication
     Dosage: UNK
     Dates: start: 202201

REACTIONS (6)
  - Renal impairment [Not Recovered/Not Resolved]
  - Incontinence [Recovering/Resolving]
  - Nocturia [Not Recovered/Not Resolved]
  - Abnormal dreams [Recovering/Resolving]
  - Fatigue [Not Recovered/Not Resolved]
  - Abnormal dreams [Recovering/Resolving]

NARRATIVE: CASE EVENT DATE: 20220301
